FAERS Safety Report 19516276 (Version 1)
Quarter: 2021Q3

REPORT INFORMATION
  Report Type: Spontaneous
  Country: US (occurrence: US)
  Receive Date: 20210709
  Receipt Date: 20210709
  Transmission Date: 20211014
  Serious: No
  Sender: FDA-Public Use
  Company Number: US-ASTELLAS-2020US039473

PATIENT
  Sex: Female

DRUGS (1)
  1. MYRBETRIQ [Suspect]
     Active Substance: MIRABEGRON
     Indication: PRODUCT USED FOR UNKNOWN INDICATION
     Route: 065
     Dates: start: 202010, end: 20201104

REACTIONS (6)
  - Fatigue [Recovering/Resolving]
  - Inability to afford medication [Unknown]
  - Tremor [Recovering/Resolving]
  - Irritability [Recovering/Resolving]
  - Drug intolerance [Unknown]
  - Dizziness [Recovering/Resolving]
